FAERS Safety Report 14625849 (Version 3)
Quarter: 2018Q2

REPORT INFORMATION
  Report Type: Report from Study
  Country: US (occurrence: US)
  Receive Date: 20180312
  Receipt Date: 20180516
  Transmission Date: 20180711
  Serious: Yes (Hospitalization, Other)
  Sender: FDA-Public Use
  Company Number: US-APOPHARMA INC-2018AP007527

PATIENT
  Age: 17 Year
  Sex: Female
  Weight: 41 kg

DRUGS (9)
  1. TRIHEXYPHENIDYL [Concomitant]
     Active Substance: TRIHEXYPHENIDYL
     Indication: DYSTONIA
     Dosage: 4 MG, TID
     Route: 048
     Dates: start: 20120203
  2. CLONAZEPAM. [Concomitant]
     Active Substance: CLONAZEPAM
     Indication: DYSTONIA
     Dosage: 0.25 MG, TID
     Route: 048
     Dates: start: 20151107
  3. IBUPROFEN. [Concomitant]
     Active Substance: IBUPROFEN
     Indication: ABDOMINAL PAIN
     Dosage: 400 MG, PRN
     Route: 048
     Dates: start: 20161216
  4. POLYETHYLENE GLYCOL [Concomitant]
     Active Substance: POLYETHYLENE GLYCOLS
     Indication: CONSTIPATION PROPHYLAXIS
     Dosage: 17 G, BID
     Route: 048
     Dates: start: 20161216
  5. FLUTICASONE. [Concomitant]
     Active Substance: FLUTICASONE
     Indication: NASAL CONGESTION
     Dosage: 50 ?G, PRN
     Route: 045
     Dates: start: 20130411
  6. LORAZEPAM. [Concomitant]
     Active Substance: LORAZEPAM
     Indication: DYSTONIA
     Dosage: 0.5 MG, PRN
     Route: 048
     Dates: start: 20151110
  7. DEFERIPRONE [Suspect]
     Active Substance: DEFERIPRONE
     Indication: NEURODEGENERATIVE DISORDER
     Dosage: 15 MG/KG, BID
     Route: 048
     Dates: start: 20170128, end: 20180215
  8. CETIRIZINE [Concomitant]
     Active Substance: CETIRIZINE HYDROCHLORIDE
     Indication: ALLERGY TO CHEMICALS
     Dosage: 10 MG, PRN
     Route: 048
     Dates: start: 20120716
  9. BACLOFEN. [Concomitant]
     Active Substance: BACLOFEN
     Indication: DYSTONIA
     Dosage: 15 MG, TID
     Route: 048
     Dates: start: 20151107

REACTIONS (2)
  - Malnutrition [Recovered/Resolved with Sequelae]
  - Small intestinal obstruction [Recovered/Resolved]

NARRATIVE: CASE EVENT DATE: 20180215
